FAERS Safety Report 7978765-1 (Version None)
Quarter: 2011Q4

REPORT INFORMATION
  Report Type: 
  Country: None (occurrence: None)
  Receive Date: 20111214
  Receipt Date: 20111212
  Transmission Date: 20120403
  Serious: Yes (Life-Threatening, Other)
  Sender: FDA-Public Use
  Company Number: US-AMGEN-USASP2011028532

PATIENT
  Age: 57 Year
  Sex: Female
  Weight: 51.156 kg

DRUGS (9)
  1. HYDROCORTISONE [Concomitant]
     Dosage: 10 MG, BID
     Route: 048
     Dates: start: 20101029
  2. SARGRAMOSTIM [Concomitant]
     Indication: NEUTROPHIL COUNT
     Dosage: 500 MU, PRN
     Dates: start: 20101012, end: 20110523
  3. OXYCODONE HCL [Concomitant]
     Dosage: 5 MG, QID
     Route: 048
  4. ALPHA LIPOIC ACID [Concomitant]
     Dosage: 100 MG, QD
     Route: 048
     Dates: start: 20110316
  5. INTERFERON ALPHA 1-A [Concomitant]
  6. REMERON [Concomitant]
     Dosage: 15 MG, QD
     Route: 048
     Dates: start: 20110114
  7. NPLATE [Suspect]
     Indication: THROMBOCYTOPENIA
     Dosage: 10 MUG/KG, UNK
     Dates: start: 20101103, end: 20110309
  8. PERIDEX                            /00016001/ [Concomitant]
     Dosage: 10 ML, QD
     Route: 048
     Dates: start: 20110321, end: 20110523
  9. LYRICA [Concomitant]
     Dosage: 75 MG, BID
     Route: 048
     Dates: start: 20110202, end: 20110615

REACTIONS (4)
  - ACUTE LYMPHOCYTIC LEUKAEMIA RECURRENT [None]
  - STAPHYLOCOCCAL INFECTION [None]
  - THROMBOCYTOPENIA [None]
  - BACTERAEMIA [None]
